FAERS Safety Report 5062250-3 (Version None)
Quarter: 2006Q3

REPORT INFORMATION
  Report Type: 
  Country: None (occurrence: None)
  Receive Date: 20060726
  Receipt Date: 20060719
  Transmission Date: 20061208
  Serious: Yes (Hospitalization)
  Sender: FDA-Public Use
  Company Number: FR-JNJFOC-20060703627

PATIENT
  Age: 91 Year
  Sex: Female

DRUGS (9)
  1. RISPERDAL [Suspect]
     Indication: DRUG USE FOR UNKNOWN INDICATION
     Route: 048
  2. DEROXAT [Suspect]
     Indication: DRUG USE FOR UNKNOWN INDICATION
     Route: 048
  3. SPIRONOLACTONE [Concomitant]
     Dosage: 2 TABS/DAY
     Route: 048
  4. ALTIZIDE [Concomitant]
     Route: 048
  5. LOXEN LP [Concomitant]
     Route: 048
  6. SOPROL [Concomitant]
     Route: 048
  7. SERMION [Concomitant]
     Route: 065
  8. DIFRAREL [Concomitant]
     Route: 065
  9. SERESTA [Concomitant]
     Route: 065

REACTIONS (3)
  - ABNORMAL BEHAVIOUR [None]
  - FALL [None]
  - HYPONATRAEMIA [None]
